FAERS Safety Report 12225713 (Version 1)
Quarter: 2016Q1

REPORT INFORMATION
  Report Type: Spontaneous
  Country: NL (occurrence: NL)
  Receive Date: 20160331
  Receipt Date: 20160331
  Transmission Date: 20160526
  Serious: Yes (Hospitalization, Other)
  Sender: FDA-Public Use
  Company Number: NL-APOTEX-2016AP007362

PATIENT
  Age: 54 Year
  Sex: Female

DRUGS (4)
  1. DOCETAXEL CONCENTRAAT VOOR OPLOSSING VOOR INFUSIE [Suspect]
     Active Substance: DOCETAXEL
     Indication: ADJUVANT THERAPY
  2. CAPECITABINE. [Suspect]
     Active Substance: CAPECITABINE
     Indication: INTRADUCTAL PROLIFERATIVE BREAST LESION
     Dosage: 825 MG/M2, BID
     Route: 065
  3. DOCETAXEL CONCENTRAAT VOOR OPLOSSING VOOR INFUSIE [Suspect]
     Active Substance: DOCETAXEL
     Indication: INTRADUCTAL PROLIFERATIVE BREAST LESION
     Dosage: 75 MG/M2 ON DAY 1 OF EACH CYCLE, EVERY 3 WEEKS
     Route: 051
  4. CAPECITABINE. [Suspect]
     Active Substance: CAPECITABINE
     Indication: ADJUVANT THERAPY
     Dosage: REDUCED BY 75% IN CYCLE 3
     Route: 065

REACTIONS (6)
  - Haematotoxicity [Recovered/Resolved]
  - Gastrointestinal toxicity [Recovered/Resolved]
  - Cognitive disorder [Not Recovered/Not Resolved]
  - Toxicity to various agents [Recovered/Resolved with Sequelae]
  - Mastitis [Recovered/Resolved]
  - Palmar-plantar erythrodysaesthesia syndrome [Recovered/Resolved with Sequelae]
